FAERS Safety Report 5583694-7 (Version None)
Quarter: 2008Q1

REPORT INFORMATION
  Report Type: 
  Country: None (occurrence: None)
  Receive Date: 20080102
  Receipt Date: 20071220
  Transmission Date: 20080703
  Serious: Yes (Hospitalization)
  Sender: FDA-Public Use
  Company Number: 2007BI027188

PATIENT
  Age: 43 Year
  Sex: Female

DRUGS (2)
  1. AVONEX [Suspect]
     Indication: MULTIPLE SCLEROSIS
     Dosage: 30 UG; QW: IM
     Dates: start: 19971101, end: 20060101
  2. AVONEX [Suspect]
     Indication: MULTIPLE SCLEROSIS
     Dosage: 30 UG; QW: IM
     Dates: start: 20060101

REACTIONS (9)
  - CHOLECYSTITIS INFECTIVE [None]
  - CONDITION AGGRAVATED [None]
  - FALL [None]
  - GAIT DISTURBANCE [None]
  - HAND FRACTURE [None]
  - MEMORY IMPAIRMENT [None]
  - MENTAL IMPAIRMENT [None]
  - MULTIPLE SCLEROSIS [None]
  - SPEECH DISORDER [None]
